FAERS Safety Report 9664277 (Version 2)
Quarter: 2013Q4

REPORT INFORMATION
  Report Type: Report from Study
  Country: US (occurrence: US)
  Receive Date: 20131101
  Receipt Date: 20131101
  Transmission Date: 20140711
  Serious: Yes (Other)
  Sender: FDA-Public Use
  Company Number: US-ABBVIE-13P-163-1129297-00

PATIENT
  Age: 33 Year
  Sex: Male

DRUGS (8)
  1. HUMIRA [Suspect]
     Indication: COLITIS ULCERATIVE
     Route: 058
     Dates: start: 20130528, end: 20130528
  2. HUMIRA [Suspect]
     Route: 058
     Dates: start: 20130619, end: 20130619
  3. HUMIRA [Suspect]
     Route: 058
     Dates: end: 20130630
  4. PREDNISONE [Concomitant]
     Indication: PRODUCT USED FOR UNKNOWN INDICATION
  5. PREDNISONE [Concomitant]
     Dosage: WEANING
  6. PREDNISONE [Concomitant]
     Dosage: TAPER
  7. PREDNISONE [Concomitant]
     Dosage: TAPER DURING HUMIRA
  8. ASACOL [Concomitant]
     Indication: COLITIS ULCERATIVE
     Route: 048
     Dates: end: 20130630

REACTIONS (4)
  - Gastrointestinal disorder [Unknown]
  - Abdominal pain [Recovering/Resolving]
  - Transfusion [Unknown]
  - Colitis ulcerative [Unknown]
